FAERS Safety Report 17789502 (Version 11)
Quarter: 2022Q3

REPORT INFORMATION
  Report Type: Report from Study
  Country: JP (occurrence: JP)
  Receive Date: 20200515
  Receipt Date: 20220730
  Transmission Date: 20221027
  Serious: Yes (Death, Hospitalization, Other)
  Sender: FDA-Public Use
  Company Number: JP-ONO-2020JP011163

PATIENT
  Age: 83 Year
  Sex: Male
  Weight: 60.5 kg

DRUGS (25)
  1. ETELCALCETIDE [Suspect]
     Active Substance: ETELCALCETIDE
     Indication: Hyperparathyroidism secondary
     Dosage: 5 MILLIGRAM, Q56H
     Route: 065
     Dates: start: 20190627, end: 20190808
  2. ETELCALCETIDE [Suspect]
     Active Substance: ETELCALCETIDE
     Dosage: 7.5 MILLIGRAM, Q56H
     Route: 065
     Dates: start: 20190810, end: 20200118
  3. ETELCALCETIDE [Suspect]
     Active Substance: ETELCALCETIDE
     Dosage: 10 MILLIGRAM, Q56H
     Route: 065
     Dates: start: 20200121, end: 20200416
  4. ETELCALCETIDE [Suspect]
     Active Substance: ETELCALCETIDE
     Dosage: 12.5 MILLIGRAM, Q56H
     Route: 065
     Dates: start: 20200418, end: 20210311
  5. ETELCALCETIDE [Suspect]
     Active Substance: ETELCALCETIDE
     Dosage: 15 MILLIGRAM, Q56H
     Route: 065
     Dates: start: 20210313
  6. ALFACALCIDOL [Concomitant]
     Active Substance: ALFACALCIDOL
     Dosage: 0.5 UG, EVERYDAY
     Route: 048
     Dates: end: 20190729
  7. ALFACALCIDOL [Concomitant]
     Active Substance: ALFACALCIDOL
     Dosage: 0.25 UG, EVERYDAY
     Route: 048
     Dates: start: 20190730, end: 20210322
  8. ALFACALCIDOL [Concomitant]
     Active Substance: ALFACALCIDOL
     Dosage: 0.5 UG, EVERYDAY
     Route: 048
     Dates: end: 20190729
  9. ALFACALCIDOL [Concomitant]
     Active Substance: ALFACALCIDOL
     Dosage: 0.25 UG, EVERYDAY
     Dates: start: 20190730, end: 20210322
  10. CALCIUM CARBONATE [Concomitant]
     Active Substance: CALCIUM CARBONATE
     Dosage: 2000 MG, EVERYDAY
     Route: 065
  11. CALCIUM CARBONATE [Concomitant]
     Active Substance: CALCIUM CARBONATE
     Dosage: 1500 MG, EVERYDAY
     Route: 065
     Dates: start: 20190924, end: 20191104
  12. CALCIUM CARBONATE [Concomitant]
     Active Substance: CALCIUM CARBONATE
     Dosage: 3000 MG, EVERYDAY
     Route: 065
     Dates: start: 20191105
  13. Fesin [Concomitant]
     Dosage: 40 MG, QW
     Route: 065
     Dates: end: 20190504
  14. Fesin [Concomitant]
     Dosage: 40 MG, QW
     Route: 065
     Dates: start: 20190713, end: 20190810
  15. Fesin [Concomitant]
     Dosage: 40 MG, QW
     Route: 065
     Dates: start: 20200314, end: 20200606
  16. Fesin [Concomitant]
     Dosage: 40 MG, QW
     Route: 065
     Dates: start: 20201114, end: 20210206
  17. ERYTHROPOIETIN [Concomitant]
     Active Substance: ERYTHROPOIETIN
     Dosage: 9000 UNIT, QW
     Route: 065
     Dates: end: 20190817
  18. ERYTHROPOIETIN [Concomitant]
     Active Substance: ERYTHROPOIETIN
     Dosage: 6000 UNIT, QW
     Route: 065
     Dates: start: 20190820, end: 20191024
  19. ERYTHROPOIETIN [Concomitant]
     Active Substance: ERYTHROPOIETIN
     Dosage: 3000 UNIT, QW
     Route: 065
     Dates: start: 20191029, end: 20200128
  20. ERYTHROPOIETIN [Concomitant]
     Active Substance: ERYTHROPOIETIN
     Dosage: 6000 UNIT, QW
     Route: 065
     Dates: start: 20200204, end: 20200523
  21. ERYTHROPOIETIN [Concomitant]
     Active Substance: ERYTHROPOIETIN
     Dosage: 3000 UNIT, QW
     Route: 065
     Dates: start: 20200526, end: 20200804
  22. ERYTHROPOIETIN [Concomitant]
     Active Substance: ERYTHROPOIETIN
     Dosage: 4500 UNIT, QW
     Route: 065
     Dates: start: 20200808, end: 20201020
  23. ERYTHROPOIETIN [Concomitant]
     Active Substance: ERYTHROPOIETIN
     Dosage: 6000 UNIT, QW
     Route: 065
     Dates: start: 20201024, end: 20210417
  24. ERYTHROPOIETIN [Concomitant]
     Active Substance: ERYTHROPOIETIN
     Dosage: 9000 UNIT, QW
     Route: 065
     Dates: start: 20210420
  25. P-tol [Concomitant]
     Dosage: 500 MG, EVERYDAY
     Route: 065
     Dates: start: 20190622, end: 20190923

REACTIONS (2)
  - Atrial fibrillation [Not Recovered/Not Resolved]
  - Gangrene [Fatal]

NARRATIVE: CASE EVENT DATE: 20200405
